FAERS Safety Report 14506095 (Version 1)
Quarter: 2018Q1

REPORT INFORMATION
  Report Type: Spontaneous
  Country: US (occurrence: US)
  Receive Date: 20180207
  Receipt Date: 20180207
  Transmission Date: 20180509
  Serious: Yes (Life-Threatening, Hospitalization)
  Sender: FDA-Public Use
  Company Number: None

PATIENT
  Age: 73 Year
  Sex: Male
  Weight: 66 kg

DRUGS (16)
  1. VISION ORAL VITAMIN [Concomitant]
  2. SYSTANE NIGHTIME [Concomitant]
  3. GRANISETRON [Concomitant]
     Active Substance: GRANISETRON
  4. PROMETHAZINE [Concomitant]
     Active Substance: PROMETHAZINE\PROMETHAZINE HYDROCHLORIDE
  5. SENOKOT [Concomitant]
     Active Substance: SENNOSIDES
  6. ERLOTINIB [Suspect]
     Active Substance: ERLOTINIB
     Indication: NON-SMALL CELL LUNG CANCER
     Route: 048
     Dates: start: 20171229, end: 20180130
  7. RANITIDINE. [Concomitant]
     Active Substance: RANITIDINE
  8. MELATONIN [Concomitant]
     Active Substance: MELATONIN
  9. HYCODAN [Concomitant]
     Active Substance: HOMATROPINE METHYLBROMIDE\HYDROCODONE BITARTRATE
  10. TESSALON PEARLES [Concomitant]
  11. MS CONTIN [Concomitant]
     Active Substance: MORPHINE SULFATE
  12. MS IR [Concomitant]
     Active Substance: MORPHINE SULFATE
  13. MVI [Concomitant]
     Active Substance: VITAMINS
  14. MIRALAX [Concomitant]
     Active Substance: POLYETHYLENE GLYCOL 3350
  15. REGLAN [Concomitant]
     Active Substance: METOCLOPRAMIDE HYDROCHLORIDE
  16. FLOMAX [Concomitant]
     Active Substance: TAMSULOSIN HYDROCHLORIDE

REACTIONS (12)
  - Mental status changes [None]
  - Disease progression [None]
  - Cytomegalovirus colitis [None]
  - Respiratory distress [None]
  - Jaundice [None]
  - Liver function test increased [None]
  - Hypotension [None]
  - Somnolence [None]
  - Hepatocellular injury [None]
  - Dehydration [None]
  - Pain [None]
  - Tachycardia [None]

NARRATIVE: CASE EVENT DATE: 20180130
